FAERS Safety Report 9101942 (Version 1)
Quarter: 2013Q1

REPORT INFORMATION
  Report Type: Spontaneous
  Country: US (occurrence: US)
  Receive Date: 20130218
  Receipt Date: 20130218
  Transmission Date: 20140127
  Serious: Yes (Hospitalization, Other)
  Sender: FDA-Public Use
  Company Number: US-NOVOPROD-370891

PATIENT
  Age: 65 Year
  Sex: Male
  Weight: 131 kg

DRUGS (19)
  1. NOVOSEVEN RT [Suspect]
     Indication: HAEMOPHILIA B WITH ANTI FACTOR IX
     Dosage: 34000 MCG Q6-12H PRN
     Route: 042
     Dates: end: 20120403
  2. NOVOSEVEN RT [Suspect]
     Dosage: 25000 MCG Q6H PRN FOR MINOR BLEEDS
     Route: 042
     Dates: start: 2012
  3. NOVOSEVEN RT [Suspect]
     Dosage: 35000 MCG Q6H PRN FOR MAJOR BLEEDING
     Route: 042
     Dates: start: 2012
  4. PROZAC [Concomitant]
     Dosage: 40 MG QD
     Route: 048
  5. LIPITOR [Concomitant]
     Indication: HYPERLIPIDAEMIA
     Dosage: 40 MG QD
     Route: 048
  6. AVAPRO [Concomitant]
     Indication: HYPERTENSION
     Dosage: 300 MG QD
     Route: 048
  7. GLUCOSAMINE AND CHONDROITIN [Concomitant]
     Indication: PRODUCT USED FOR UNKNOWN INDICATION
     Dosage: 1 CAP BID
     Route: 048
  8. AMARYL [Concomitant]
     Indication: TYPE 2 DIABETES MELLITUS
     Dosage: 2 MG QD
     Route: 048
  9. PROTONIX [Concomitant]
     Indication: GASTROOESOPHAGEAL REFLUX DISEASE
     Dosage: 40 MG QD
     Route: 048
  10. LIDEX [Concomitant]
     Indication: PRURITUS
     Dosage: LIDEX 60G OF 0.05% 1-2X DAILY FOR ITCHING
     Route: 061
  11. MENTHOL [Concomitant]
     Indication: PRURITUS
     Dosage: 0.48G 1-2X DAILY FOR ITCHING
     Route: 061
  12. LUBRIDERM                          /01007601/ [Concomitant]
     Indication: PRURITUS
     Dosage: QS TO 240G W/ MENTHOL + LIDEX 1-2X DAILY FOR ITCHING
     Route: 061
  13. AMICAR [Concomitant]
     Indication: PRODUCT USED FOR UNKNOWN INDICATION
     Dosage: 3 G QID WHILE AWAKE FOR 5-7 DAYS AS DIRECTED
     Route: 048
  14. JANUVIA [Concomitant]
     Indication: TYPE 2 DIABETES MELLITUS
     Dosage: 50 MG QD
     Route: 048
  15. LORTAB                             /00607101/ [Concomitant]
     Indication: PAIN
     Dosage: 5MG HYDROCODONE/500MG ACETOMINOPHEN 1-2 TABS Q4-6H AS NEEDED FOR PAIN
     Route: 048
  16. VERAPAMIL [Concomitant]
     Indication: HYPERTENSION
     Dosage: 120MG CR CAP DAILY
     Route: 048
  17. KETOCONAZOLE [Concomitant]
     Indication: RASH
     Dosage: APPLY TO RASH BID
     Route: 061
  18. FUROSEMIDE [Concomitant]
     Indication: PRODUCT USED FOR UNKNOWN INDICATION
     Dosage: 40 MG QD
     Route: 048
  19. ZYRTEC [Concomitant]
     Indication: SEASONAL ALLERGY
     Dosage: 1 TAB DAILY AS NEEDED FOR SEASONAL ALLERGIES
     Route: 048

REACTIONS (1)
  - Transient ischaemic attack [Recovered/Resolved]
